FAERS Safety Report 15271065 (Version 2)
Quarter: 2018Q4

REPORT INFORMATION
  Report Type: Spontaneous
  Country: US (occurrence: US)
  Receive Date: 20180813
  Receipt Date: 20181221
  Transmission Date: 20190204
  Serious: No
  Sender: FDA-Public Use
  Company Number: US-VERTEX PHARMACEUTICALS-2018-005620

PATIENT
  Sex: Male
  Weight: 87 kg

DRUGS (10)
  1. LANTUS [Concomitant]
     Active Substance: INSULIN GLARGINE
     Dosage: 10 UT, QD
  2. ASPIRIN                            /00002701/ [Concomitant]
     Active Substance: ASPIRIN
     Dosage: 1 DOSAGE FORM, QD
     Route: 048
  3. MOMETASONE [Concomitant]
     Active Substance: MOMETASONE
     Dosage: 2 DOSAGE FORM, BID
     Route: 045
  4. PULMOZYME [Concomitant]
     Active Substance: DORNASE ALFA
     Dosage: 2.5 MILLILITER, QD
     Route: 048
  5. ALBUTEROL                          /00139501/ [Concomitant]
     Active Substance: ALBUTEROL
     Dosage: 2 DOSAGE FORM, PRN
     Route: 055
  6. CREON [Concomitant]
     Active Substance: PANCRELIPASE AMYLASE\PANCRELIPASE LIPASE\PANCRELIPASE PROTEASE
     Dosage: 5 DF WITH MEALS, TID AND 3 DF WITH SNACKS, BID
     Route: 048
  7. BUDESONIDE. [Concomitant]
     Active Substance: BUDESONIDE
     Dosage: 2 MILLILITER, QD
  8. SODIUM CHLORIDE. [Concomitant]
     Active Substance: SODIUM CHLORIDE
     Dosage: 4 MILLILITER, QD
     Route: 055
  9. SYMDEKO [Suspect]
     Active Substance: IVACAFTOR\TEZACAFTOR
     Indication: CYSTIC FIBROSIS
     Dosage: 100MG TEZACAFTOR/150MG IVACAFTOR AM; 150MG IVACAFTOR PM
     Route: 048
     Dates: start: 201805
  10. NOVOLOG [Concomitant]
     Active Substance: INSULIN ASPART
     Dosage: 4-5 DF, BID

REACTIONS (1)
  - Alopecia [Unknown]

NARRATIVE: CASE EVENT DATE: 2018
